FAERS Safety Report 16446803 (Version 1)
Quarter: 2019Q2

REPORT INFORMATION
  Report Type: Spontaneous
  Country: US (occurrence: US)
  Receive Date: 20190618
  Receipt Date: 20190618
  Transmission Date: 20190711
  Serious: No
  Sender: FDA-Public Use
  Company Number: US-PFIZER INC-2019257255

PATIENT
  Age: 59 Year
  Sex: Male
  Weight: 108.86 kg

DRUGS (1)
  1. VIAGRA [Suspect]
     Active Substance: SILDENAFIL CITRATE
     Indication: ERECTILE DYSFUNCTION
     Dosage: 25 MG, 1X/DAY [ONE TIME AT NIGHT]
     Route: 048
     Dates: start: 201801

REACTIONS (3)
  - Erection increased [Not Recovered/Not Resolved]
  - Ejaculation disorder [Recovering/Resolving]
  - Semen volume increased [Recovering/Resolving]

NARRATIVE: CASE EVENT DATE: 201812
